FAERS Safety Report 14841513 (Version 1)
Quarter: 2018Q2

REPORT INFORMATION
  Report Type: Spontaneous
  Country: CH (occurrence: CH)
  Receive Date: 20180503
  Receipt Date: 20180503
  Transmission Date: 20180711
  Serious: Yes (Death, Other)
  Sender: FDA-Public Use
  Company Number: CH-BAYER-2018-078571

PATIENT
  Age: 64 Year
  Sex: Female

DRUGS (2)
  1. NEXAVAR [Suspect]
     Active Substance: SORAFENIB
     Indication: METASTASIS
  2. NEXAVAR [Suspect]
     Active Substance: SORAFENIB
     Indication: MALIGNANT MELANOMA
     Dosage: UNK
     Dates: start: 20180319, end: 201804

REACTIONS (4)
  - Off label use [None]
  - Product use in unapproved indication [None]
  - Ascites [Fatal]
  - Malignant melanoma [Fatal]

NARRATIVE: CASE EVENT DATE: 20180405
